FAERS Safety Report 7162371 (Version 17)
Quarter: 2013Q4

REPORT INFORMATION
  Report Type: Report from Study
  Country: CA (occurrence: CA)
  Receive Date: 20091029
  Receipt Date: 20131126
  Transmission Date: 20140711
  Serious: Yes (Other)
  Sender: FDA-Public Use
  Company Number: PHHY2009CA46390

PATIENT
  Sex: Female

DRUGS (6)
  1. SANDOSTATIN LAR [Suspect]
     Indication: ACROMEGALY
     Dosage: 30 MG, QMO
     Route: 030
     Dates: start: 20080812
  2. SANDOSTATIN LAR [Suspect]
     Dosage: 4 MG, EVERY 4 WEEKS
     Route: 030
     Dates: start: 20080812
  3. SANDOSTATIN LAR [Suspect]
     Dosage: 30 MG, EVERY 4 WEEKS
     Route: 030
  4. SANDOSTATIN LAR [Suspect]
     Dosage: 30 MG, EVERY 3 WEEKS
     Route: 030
  5. SANDOSTATIN LAR [Suspect]
     Dosage: 30 MG, EVERY 4 WEEKS
     Route: 030
  6. RAMIPRIL [Concomitant]
     Dosage: UNK UKN, UNK

REACTIONS (13)
  - Tremor [Unknown]
  - Blood pressure increased [Unknown]
  - Arthritis [Unknown]
  - Arthralgia [Unknown]
  - Gait disturbance [Unknown]
  - Loss of consciousness [Unknown]
  - Choking [Unknown]
  - Heart rate increased [Unknown]
  - Injection site pain [Unknown]
  - Nausea [Unknown]
  - Malaise [Unknown]
  - Retching [Unknown]
  - Vomiting [Unknown]
